FAERS Safety Report 5600496-3 (Version None)
Quarter: 2008Q1

REPORT INFORMATION
  Report Type: 
  Country: None (occurrence: None)
  Receive Date: 20080123
  Receipt Date: 20080114
  Transmission Date: 20080703
  Serious: Yes (Other)
  Sender: FDA-Public Use
  Company Number: US-ELI_LILLY_AND_COMPANY-US200801002581

PATIENT
  Sex: Male

DRUGS (1)
  1. HUMULIN R [Suspect]
     Dates: end: 20070101

REACTIONS (1)
  - RENAL DISORDER [None]
